FAERS Safety Report 9034734 (Version 1)
Quarter: 2013Q1

REPORT INFORMATION
  Report Type: Spontaneous
  Country: IT (occurrence: None)
  Receive Date: 20130111
  Receipt Date: 20130111
  Transmission Date: 20140127
  Serious: No
  Sender: FDA-Public Use
  Company Number: 1212ITA009650

PATIENT
  Age: 14 Year
  Sex: Male

DRUGS (1)
  1. CEDAX (CEFTIBUTEN) CAPSULE [Suspect]
     Indication: OROPHARYNGEAL PAIN
     Route: 048
     Dates: start: 20121206, end: 20121206

REACTIONS (3)
  - Urticaria [None]
  - Pruritus [None]
  - Drug hypersensitivity [None]
